FAERS Safety Report 10927773 (Version 1)
Quarter: 2015Q1

REPORT INFORMATION
  Report Type: Spontaneous
  Country: US (occurrence: US)
  Receive Date: 20150319
  Receipt Date: 20150319
  Transmission Date: 20150721
  Serious: Yes (Other)
  Sender: FDA-Public Use
  Company Number: US-AMGEN-USASP2015025257

PATIENT

DRUGS (1)
  1. ENBREL [Suspect]
     Active Substance: ETANERCEPT
     Indication: RHEUMATOID ARTHRITIS
     Dosage: UNK
     Route: 065

REACTIONS (10)
  - Sensation of foreign body [Unknown]
  - Pain [Unknown]
  - Abdominal pain upper [Unknown]
  - Gallbladder disorder [Unknown]
  - Oropharyngeal pain [Unknown]
  - Gallbladder pain [Unknown]
  - No therapeutic response [Unknown]
  - Rheumatoid arthritis [Unknown]
  - Reflux gastritis [Unknown]
  - Abdominal distension [Unknown]
